FAERS Safety Report 14283751 (Version 1)
Quarter: 2017Q4

REPORT INFORMATION
  Report Type: Spontaneous
  Country: US (occurrence: US)
  Receive Date: 20171213
  Receipt Date: 20171213
  Transmission Date: 20180321
  Serious: Yes (Other)
  Sender: FDA-Public Use
  Company Number: None

PATIENT
  Age: 30 Year
  Sex: Female
  Weight: 63 kg

DRUGS (2)
  1. IBUPROFEN. [Concomitant]
     Active Substance: IBUPROFEN
  2. CIPROFLOXACIN. [Suspect]
     Active Substance: CIPROFLOXACIN
     Indication: URINARY TRACT INFECTION
     Dosage: ?          QUANTITY:20 CAPSULE(S);?EVERY 12 HOURS ORAL
     Route: 048
     Dates: start: 20171204, end: 20171209

REACTIONS (7)
  - Abdominal pain upper [None]
  - Hypoaesthesia [None]
  - Pain [None]
  - Bladder pain [None]
  - Adnexa uteri pain [None]
  - Renal pain [None]
  - Renal vein compression [None]

NARRATIVE: CASE EVENT DATE: 20171204
